FAERS Safety Report 7026768-6 (Version None)
Quarter: 2010Q4

REPORT INFORMATION
  Report Type: 
  Country: None (occurrence: None)
  Receive Date: 20101004
  Receipt Date: 20100930
  Transmission Date: 20110411
  Serious: Yes (Life-Threatening)
  Sender: FDA-Public Use
  Company Number: GB-ASTRAZENECA-2010SE46135

PATIENT
  Age: 60 Year
  Sex: Male

DRUGS (1)
  1. BUPIVACAINE HCL [Suspect]
     Indication: NERVE BLOCK
     Dosage: 2 ML INCREMENTS OVER ONE MINUTE
     Route: 053

REACTIONS (4)
  - CARDIAC ARREST [None]
  - GRAND MAL CONVULSION [None]
  - OBSTRUCTIVE AIRWAYS DISORDER [None]
  - RESPIRATORY ARREST [None]
